FAERS Safety Report 9536161 (Version 1)
Quarter: 2013Q3

REPORT INFORMATION
  Report Type: Spontaneous
  Country: US (occurrence: None)
  Receive Date: 20130917
  Receipt Date: 20130917
  Transmission Date: 20140515
  Serious: Yes (Other)
  Sender: FDA-Public Use
  Company Number: None

PATIENT
  Age: 81 Year
  Sex: Female
  Weight: 58.06 kg

DRUGS (11)
  1. XARELTO (RIVAROXABAN) [Suspect]
     Indication: CARDIAC DISORDER
     Dosage: 10 MG TAB 1 TABLET DAILY 1 FREQUENCY BY MOUTH
     Route: 048
     Dates: start: 20130820, end: 20130820
  2. METOPROLOL TARTRATE [Concomitant]
  3. MAGNESIUM OXIDE [Concomitant]
  4. DIGOXIN [Concomitant]
  5. SIMVASTATIN [Concomitant]
  6. ELIQUIS [Concomitant]
  7. CALCIUM CITRATE + D3 [Concomitant]
  8. COQ10 [Concomitant]
  9. B12 [Concomitant]
  10. B6 [Concomitant]
  11. FOLIC ACID [Concomitant]

REACTIONS (1)
  - Unevaluable event [None]
